FAERS Safety Report 5788115-7 (Version None)
Quarter: 2008Q2

REPORT INFORMATION
  Report Type: 
  Country: None (occurrence: None)
  Receive Date: 20080625
  Receipt Date: 20080624
  Transmission Date: 20081010
  Serious: Yes (Death)
  Sender: FDA-Public Use
  Company Number: CH-BOEHRINGER INGELHEIM GMBH, GERMANY-2008-DE-03669SI

PATIENT
  Sex: Male

DRUGS (2)
  1. PRADIF [Suspect]
     Route: 048
  2. XATRAL [Concomitant]

REACTIONS (1)
  - MULTI-ORGAN FAILURE [None]
